FAERS Safety Report 5130852-1 (Version None)
Quarter: 2006Q4

REPORT INFORMATION
  Report Type: 
  Country: None (occurrence: None)
  Receive Date: 20061017
  Receipt Date: 20061017
  Transmission Date: 20070319
  Serious: No
  Sender: FDA-Public Use
  Company Number: None

PATIENT
  Age: 38 Year
  Sex: Female
  Weight: 48.9885 kg

DRUGS (2)
  1. CIPRO [Suspect]
     Indication: KIDNEY INFECTION
     Dosage: 500 MG 2 X DAY PO
     Route: 048
     Dates: start: 20060911, end: 20060912
  2. CIPRO [Suspect]
     Indication: URINARY TRACT INFECTION
     Dosage: 250 MG 2 X DAY PO
     Route: 048
     Dates: start: 20060904, end: 20060908

REACTIONS (9)
  - DEPRESSION [None]
  - DIZZINESS [None]
  - FACIAL PARESIS [None]
  - FATIGUE [None]
  - HYPOAESTHESIA [None]
  - INSOMNIA [None]
  - MUSCULAR WEAKNESS [None]
  - NEUROPATHY PERIPHERAL [None]
  - PARAESTHESIA [None]
